FAERS Safety Report 8020227-X (Version None)
Quarter: 2012Q1

REPORT INFORMATION
  Report Type: 
  Country: None (occurrence: None)
  Receive Date: 20120103
  Receipt Date: 20111222
  Transmission Date: 20120608
  Serious: Yes (Hospitalization)
  Sender: FDA-Public Use
  Company Number: US-CELGENEUS-163-21880-11102306

PATIENT
  Age: 65 Year
  Sex: Female
  Weight: 86 kg

DRUGS (9)
  1. FLUIDS [Concomitant]
     Indication: CELLULITIS
     Route: 041
     Dates: start: 20110101
  2. BORTEZOMIB [Suspect]
     Indication: MULTIPLE MYELOMA
     Dosage: 1.3 MILLIGRAM/SQ. METER
     Route: 041
     Dates: start: 20110920, end: 20110930
  3. CEFAZOLIN [Suspect]
     Route: 065
  4. WARFARIN SODIUM [Concomitant]
     Route: 065
  5. ANTIBIOTICS [Concomitant]
     Indication: CELLULITIS
     Route: 065
  6. ELECTROLYTE REPLACEMENT [Concomitant]
     Indication: CELLULITIS
     Route: 065
  7. REVLIMID [Suspect]
     Indication: MULTIPLE MYELOMA
     Dosage: 25 MILLIGRAM
     Route: 048
     Dates: start: 20110920, end: 20111003
  8. DEXAMETHASONE [Suspect]
     Indication: MULTIPLE MYELOMA
     Dosage: 20 MILLIGRAM
     Route: 048
     Dates: start: 20110920, end: 20111001
  9. ASPIRIN [Concomitant]
     Dosage: 325 MILLIGRAM
     Route: 048
     Dates: start: 20110920

REACTIONS (10)
  - INTERNATIONAL NORMALISED RATIO INCREASED [None]
  - HYPOKALAEMIA [None]
  - RENAL FAILURE CHRONIC [None]
  - LYMPHOCYTE COUNT DECREASED [None]
  - KIDNEY INFECTION [None]
  - HYPOCALCAEMIA [None]
  - BLOOD CREATININE INCREASED [None]
  - ACIDOSIS [None]
  - HYPOMAGNESAEMIA [None]
  - SEPSIS [None]
